FAERS Safety Report 9361409 (Version 1)
Quarter: 2013Q2

REPORT INFORMATION
  Report Type: Spontaneous
  Country: IT (occurrence: IT)
  Receive Date: 20130621
  Receipt Date: 20130621
  Transmission Date: 20140414
  Serious: Yes (Hospitalization)
  Sender: FDA-Public Use
  Company Number: IT-TEVA-412538ISR

PATIENT
  Age: 52 Year
  Sex: Male

DRUGS (1)
  1. FLUOROURACILE TEVA [Suspect]
     Indication: LARYNGEAL CANCER
     Dosage: 2021 MG CYCLICAL
     Route: 042
     Dates: start: 20130604, end: 20130607

REACTIONS (2)
  - Dysphagia [Unknown]
  - Throat tightness [Unknown]
